FAERS Safety Report 11390614 (Version 1)
Quarter: 2015Q3

REPORT INFORMATION
  Report Type: Spontaneous
  Country: US (occurrence: US)
  Receive Date: 20150818
  Receipt Date: 20150818
  Transmission Date: 20151125
  Serious: No
  Sender: FDA-Public Use
  Company Number: US-ROCHE-1375840

PATIENT
  Age: 52 Year
  Sex: Female

DRUGS (8)
  1. RIBASPHERE [Suspect]
     Active Substance: RIBAVIRIN
     Indication: CHRONIC HEPATITIS C
     Route: 065
     Dates: start: 20140228
  2. RIBASPHERE [Suspect]
     Active Substance: RIBAVIRIN
     Route: 065
  3. PEGASYS [Suspect]
     Active Substance: PEGINTERFERON ALFA-2A
     Indication: CHRONIC HEPATITIS C
     Route: 065
     Dates: start: 20140228
  4. INCIVEK [Suspect]
     Active Substance: TELAPREVIR
     Route: 065
     Dates: start: 20140410
  5. PEGASYS [Suspect]
     Active Substance: PEGINTERFERON ALFA-2A
     Route: 058
     Dates: start: 20140410
  6. DILAUDID [Concomitant]
     Active Substance: HYDROMORPHONE HYDROCHLORIDE
     Indication: ARTHRITIS
     Route: 065
  7. RIBASPHERE [Suspect]
     Active Substance: RIBAVIRIN
     Dosage: IN DIVIDED DOSES
     Route: 048
     Dates: start: 20140410
  8. INCIVEK [Suspect]
     Active Substance: TELAPREVIR
     Indication: CHRONIC HEPATITIS C
     Route: 065
     Dates: start: 20140228

REACTIONS (9)
  - Dermatitis bullous [Recovering/Resolving]
  - Limb discomfort [Unknown]
  - Eye irritation [Unknown]
  - Dyspnoea [Unknown]
  - Fall [Unknown]
  - Oral pain [Unknown]
  - Drug dose omission [Unknown]
  - Pruritus [Unknown]
  - Foot fracture [Unknown]

NARRATIVE: CASE EVENT DATE: 20140328
